FAERS Safety Report 22394105 (Version 1)
Quarter: 2023Q2

REPORT INFORMATION
  Report Type: Other
  Country: ZA (occurrence: None)
  Receive Date: 20230601
  Receipt Date: 20230601
  Transmission Date: 20230722
  Serious: Yes (Other)
  Sender: FDA-Public Use
  Company Number: ZA-ROCHE-3357769

PATIENT
  Sex: Female

DRUGS (1)
  1. OCREVUS [Suspect]
     Active Substance: OCRELIZUMAB
     Indication: Relapsing-remitting multiple sclerosis
     Route: 065
     Dates: start: 20220516

REACTIONS (5)
  - Magnetic resonance imaging head abnormal [Unknown]
  - Cerebral ventricle dilatation [Unknown]
  - Multiple sclerosis [Unknown]
  - Cerebral calcification [Unknown]
  - Paranasal sinus mucosal hypertrophy [Unknown]
